FAERS Safety Report 25527384 (Version 1)
Quarter: 2025Q3

REPORT INFORMATION
  Report Type: Spontaneous
  Country: GB (occurrence: GB)
  Receive Date: 20250708
  Receipt Date: 20250708
  Transmission Date: 20251020
  Serious: Yes (Hospitalization, Other)
  Sender: ACCORD
  Company Number: None

PATIENT
  Age: 58 Year
  Sex: Male

DRUGS (12)
  1. SERTRALINE [Suspect]
     Active Substance: SERTRALINE HYDROCHLORIDE
     Indication: Product used for unknown indication
  2. TAMSULOSIN [Concomitant]
     Active Substance: TAMSULOSIN
  3. ZOLPIDEM [Concomitant]
     Active Substance: ZOLPIDEM TARTRATE
  4. ACETAMINOPHEN [Concomitant]
     Active Substance: ACETAMINOPHEN
  5. MIRTAZAPINE [Concomitant]
     Active Substance: MIRTAZAPINE
  6. FAMOTIDINE [Concomitant]
     Active Substance: FAMOTIDINE
     Dates: start: 20250626
  7. LACTULOSE [Concomitant]
     Active Substance: LACTULOSE
  8. CHLORPROMAZINE [Concomitant]
     Active Substance: CHLORPROMAZINE
  9. DIAZEPAM [Concomitant]
     Active Substance: DIAZEPAM
  10. CHLORDIAZEPOXIDE [Concomitant]
     Active Substance: CHLORDIAZEPOXIDE
  11. CANDESARTAN [Concomitant]
     Active Substance: CANDESARTAN
  12. ATORVASTATIN [Concomitant]
     Active Substance: ATORVASTATIN

REACTIONS (1)
  - Delirium [Recovered/Resolved]
